FAERS Safety Report 9797980 (Version 1)
Quarter: 2014Q1

REPORT INFORMATION
  Report Type: Spontaneous
  Country: FR (occurrence: None)
  Receive Date: 20140102
  Receipt Date: 20140102
  Transmission Date: 20141002
  Serious: Yes (Death)
  Sender: FDA-Public Use
  Company Number: 2044020

PATIENT
  Age: 82 Year
  Sex: Female

DRUGS (11)
  1. ATRACURIUM BESILATE [Suspect]
     Indication: INDUCTION OF ANAESTHESIA
     Dates: start: 20100616, end: 20100616
  2. SUFENTANIL [Suspect]
     Indication: INDUCTION OF ANAESTHESIA
     Dosage: 17.5 GAMMA, INTRAVENOUS
     Dates: start: 20100616, end: 20100616
  3. ETOMIDATE [Suspect]
     Indication: INDUCTION OF ANAESTHESIA
     Dates: start: 20100616, end: 20100616
  4. EBIXA [Concomitant]
  5. DAFLON [Concomitant]
  6. EQUANIL [Concomitant]
  7. SEROPRAM [Concomitant]
  8. LEVOTHYROX [Concomitant]
  9. UVEDOSE [Concomitant]
  10. PERFALGAN [Concomitant]
  11. VITAMINE [Concomitant]

REACTIONS (5)
  - Shock [None]
  - Mydriasis [None]
  - Anaphylactic reaction [None]
  - Pulmonary embolism [None]
  - Myocardial infarction [None]
